FAERS Safety Report 8989109 (Version 1)
Quarter: 2012Q4

REPORT INFORMATION
  Report Type: 
  Country: JP (occurrence: JP)
  Receive Date: 20121228
  Receipt Date: 20121228
  Transmission Date: 20130627
  Serious: Yes (Other)
  Sender: FDA-Public Use
  Company Number: JP-ASTELLAS-2012JP012073

PATIENT
  Age: 6 Year
  Sex: Male
  Weight: 20 kg

DRUGS (14)
  1. PROGRAF [Suspect]
     Indication: PROPHYLAXIS AGAINST GRAFT VERSUS HOST DISEASE
     Route: 065
  2. ETOPOSIDE [Concomitant]
     Dosage: 150 mg/m2, Unknown/D
     Route: 065
  3. ETOPOSIDE [Concomitant]
     Dosage: 100 mg/m2, Unknown/D
     Route: 065
  4. ETOPOSIDE [Concomitant]
     Dosage: 60 mg/kg, Unknown/D
     Route: 065
  5. CYTARABINE [Concomitant]
     Dosage: 200 mg/m2, Unknown/D
     Route: 065
  6. CYTARABINE [Concomitant]
     Dosage: 3 g/m2, bid
     Route: 065
  7. MITOXANTRONE [Concomitant]
     Dosage: 5 mg/m2, Unknown/D
     Route: 065
  8. IDARUBICIN [Concomitant]
     Dosage: 10 mg/m2, Unknown/D
     Route: 065
  9. SORAFENIB [Concomitant]
     Dosage: 200 mg, Unknown/D
     Route: 048
  10. SORAFENIB [Concomitant]
     Dosage: 300 mg, Unknown/D
     Route: 048
  11. SORAFENIB [Concomitant]
     Dosage: 150 mg, qod
     Route: 048
  12. SORAFENIB [Concomitant]
     Dosage: 250 mg, qod
     Route: 048
  13. METHOTREXATE [Concomitant]
     Indication: PROPHYLAXIS AGAINST GRAFT VERSUS HOST DISEASE
     Route: 065
  14. CYCLOPHOSPHAMIDE [Concomitant]
     Dosage: 60 mg/kg, Unknown/D
     Route: 065

REACTIONS (2)
  - Drug ineffective [Unknown]
  - Acute graft versus host disease [Recovering/Resolving]
